FAERS Safety Report 5716569-0 (Version None)
Quarter: 2008Q2

REPORT INFORMATION
  Report Type: 
  Country: None (occurrence: None)
  Receive Date: 20080424
  Receipt Date: 20080410
  Transmission Date: 20081010
  Serious: Yes (Other)
  Sender: FDA-Public Use
  Company Number: US-AMGEN-US274054

PATIENT
  Sex: Female

DRUGS (8)
  1. ENBREL [Suspect]
     Indication: RHEUMATOID ARTHRITIS
     Route: 058
     Dates: start: 20030401, end: 20060720
  2. MOBIC [Concomitant]
     Route: 048
     Dates: start: 20050128, end: 20060321
  3. PREDNISONE [Concomitant]
     Route: 065
     Dates: start: 20001207
  4. SYNTHROID [Concomitant]
     Route: 065
     Dates: start: 20001207
  5. FOSAMAX [Concomitant]
     Route: 048
     Dates: start: 20010131
  6. ZIAC [Concomitant]
     Route: 065
  7. DIOVAN [Concomitant]
     Route: 065
  8. ZYRTEC [Concomitant]
     Route: 065

REACTIONS (2)
  - LEUKOCYTOCLASTIC VASCULITIS [None]
  - RENAL FAILURE [None]
